FAERS Safety Report 5895174-X (Version None)
Quarter: 2008Q3

REPORT INFORMATION
  Report Type: 
  Country: None (occurrence: None)
  Receive Date: 20080924
  Receipt Date: 20080915
  Transmission Date: 20090109
  Serious: Yes (Hospitalization)
  Sender: FDA-Public Use
  Company Number: FR-ABBOTT-08P-056-0474070-02

PATIENT
  Sex: Male
  Weight: 84 kg

DRUGS (3)
  1. RITONAVIR SOFT GELATIN CAPSULES (BLINDED) [Suspect]
     Indication: HIV INFECTION
     Dates: start: 20080215, end: 20080215
  2. TMC125 [Concomitant]
     Indication: HIV INFECTION
     Route: 048
     Dates: start: 20080215, end: 20080215
  3. TMC114 [Concomitant]
     Indication: HIV INFECTION
     Dates: start: 20080215, end: 20080215

REACTIONS (3)
  - DRUG INTERACTION [None]
  - PANCYTOPENIA [None]
  - RENAL FAILURE [None]
